FAERS Safety Report 5306011-6 (Version None)
Quarter: 2007Q2

REPORT INFORMATION
  Report Type: 
  Country: None (occurrence: None)
  Receive Date: 20070420
  Receipt Date: 20070420
  Transmission Date: 20071010
  Serious: Yes (Hospitalization)
  Sender: FDA-Public Use
  Company Number: None

PATIENT
  Sex: Female
  Weight: 47 kg

DRUGS (3)
  1. BEVACIZUMAB (RHUMAB VEGF) [Suspect]
     Dosage: 454 MG
  2. CAMPTOSAR [Suspect]
     Dosage: 314 MG
  3. ELOXATIN [Suspect]
     Dosage: 170 MG

REACTIONS (1)
  - PULMONARY EMBOLISM [None]
